FAERS Safety Report 10255703 (Version 1)
Quarter: 2014Q2

REPORT INFORMATION
  Report Type: Spontaneous
  Country: US (occurrence: US)
  Receive Date: 20140624
  Receipt Date: 20140624
  Transmission Date: 20141212
  Serious: Yes (Hospitalization)
  Sender: FDA-Public Use
  Company Number: US-ASTRAZENECA-2014SE44425

PATIENT
  Age: 86 Year
  Sex: Female
  Weight: 64.4 kg

DRUGS (4)
  1. ATACAND HCT [Suspect]
     Indication: HYPERTENSION
     Dosage: 32+12.5 DAILY
     Route: 048
     Dates: start: 2000
  2. ATACAND HCT [Suspect]
     Indication: HYPERTENSION
     Dosage: GENERIC
     Route: 048
  3. LIPITOR [Concomitant]
     Indication: BLOOD CHOLESTEROL
     Route: 048
     Dates: start: 1999
  4. AMYTRIPTYLINE [Concomitant]
     Indication: DEPRESSION
     Route: 048
     Dates: start: 1984

REACTIONS (5)
  - Blood pressure increased [Unknown]
  - Feeling abnormal [Unknown]
  - Dizziness [Unknown]
  - Feeling jittery [Unknown]
  - Drug ineffective [Unknown]
